FAERS Safety Report 16975617 (Version 1)
Quarter: 2019Q4

REPORT INFORMATION
  Report Type: Spontaneous
  Country: US (occurrence: US)
  Receive Date: 20191030
  Receipt Date: 20191030
  Transmission Date: 20200122
  Serious: Yes (Other)
  Sender: FDA-Public Use
  Company Number: US-AMGEN-USASP2019176923

PATIENT

DRUGS (4)
  1. FOLINIC ACID [Concomitant]
     Active Substance: LEUCOVORIN
     Indication: COLORECTAL CANCER
     Dosage: UNK UNK, Q2WK (14-DAY TREATMENT CYCLE)
  2. 5-FU [FLUOROURACIL] [Concomitant]
     Active Substance: FLUOROURACIL
     Indication: COLORECTAL CANCER
     Dosage: UNK UNK, Q2WK (14-DAY TREATMENT CYCLE)
  3. OXALIPLATIN. [Concomitant]
     Active Substance: OXALIPLATIN
     Indication: COLORECTAL CANCER
     Dosage: UNK, Q2WK (14-DAY TREATMENT CYCLE)
  4. PANITUMUMAB [Suspect]
     Active Substance: PANITUMUMAB
     Indication: COLORECTAL CANCER
     Dosage: UNK UNK, CYCLICAL
     Route: 065

REACTIONS (14)
  - Liver function test increased [Unknown]
  - Nausea [Unknown]
  - Febrile neutropenia [Unknown]
  - Dehydration [Unknown]
  - Fatigue [Unknown]
  - Neutropenia [Unknown]
  - Embolism venous [Unknown]
  - Tooth disorder [Unknown]
  - Pain [Unknown]
  - Thrombocytopenia [Unknown]
  - Seizure [Unknown]
  - Infection [Unknown]
  - Chest pain [Unknown]
  - Vomiting [Unknown]
